FAERS Safety Report 17762631 (Version 1)
Quarter: 2020Q2

REPORT INFORMATION
  Report Type: Report from Study
  Country: HK (occurrence: HK)
  Receive Date: 20200509
  Receipt Date: 20200509
  Transmission Date: 20200714
  Serious: Yes (Other)
  Sender: FDA-Public Use
  Company Number: HK-ROCHE-2597612

PATIENT

DRUGS (10)
  1. DASABUVIR [Suspect]
     Active Substance: DASABUVIR
     Indication: ANTIVIRAL TREATMENT
     Route: 065
  2. PARITAPREVIR [Suspect]
     Active Substance: PARITAPREVIR
     Indication: ANTIVIRAL TREATMENT
     Route: 065
  3. DACLATASVIR. [Suspect]
     Active Substance: DACLATASVIR
     Indication: ANTIVIRAL TREATMENT
     Route: 065
  4. SOFOSBUVIR [Suspect]
     Active Substance: SOFOSBUVIR
     Indication: ANTIVIRAL TREATMENT
     Route: 065
  5. ASUNAPREVIR [Suspect]
     Active Substance: ASUNAPREVIR
     Indication: ANTIVIRAL TREATMENT
     Route: 065
  6. PEGINTERFERON ALFA-2A. [Suspect]
     Active Substance: PEGINTERFERON ALFA-2A
     Indication: ANTIVIRAL TREATMENT
     Route: 065
  7. PEGINTERFERON ALFA-2B [Suspect]
     Active Substance: PEGINTERFERON ALFA-2B
     Indication: ANTIVIRAL TREATMENT
     Route: 065
  8. RIBAVIRIN. [Suspect]
     Active Substance: RIBAVIRIN
     Indication: ANTIVIRAL TREATMENT
     Route: 065
  9. LEDIPASVIR;SOFOSBUVIR [Suspect]
     Active Substance: LEDIPASVIR\SOFOSBUVIR
     Indication: ANTIVIRAL TREATMENT
     Route: 065
  10. OMBITASVIR [Suspect]
     Active Substance: OMBITASVIR
     Indication: ANTIVIRAL TREATMENT
     Route: 065

REACTIONS (3)
  - Bleeding varicose vein [Unknown]
  - Ascites [Unknown]
  - Hepatocellular carcinoma [Unknown]
